FAERS Safety Report 8964555 (Version 2)
Quarter: 2013Q1

REPORT INFORMATION
  Report Type: Spontaneous
  Country: BE (occurrence: BE)
  Receive Date: 20121213
  Receipt Date: 20130325
  Transmission Date: 20140127
  Serious: Yes (Other)
  Sender: FDA-Public Use
  Company Number: BE-JNJFOC-20121205102

PATIENT
  Sex: Female

DRUGS (11)
  1. XARELTO [Suspect]
     Indication: CEREBROVASCULAR ACCIDENT PROPHYLAXIS
     Route: 048
     Dates: start: 20121023, end: 201211
  2. XARELTO [Suspect]
     Indication: ATRIAL FIBRILLATION
     Route: 048
     Dates: start: 20121023, end: 201211
  3. CORDARONE [Concomitant]
     Route: 065
     Dates: start: 201210, end: 20121024
  4. NOBITEN [Concomitant]
     Indication: PRODUCT USED FOR UNKNOWN INDICATION
     Route: 065
  5. NOBITEN [Concomitant]
     Indication: PRODUCT USED FOR UNKNOWN INDICATION
     Route: 065
     Dates: start: 201210
  6. STILNOCT [Concomitant]
     Indication: PRODUCT USED FOR UNKNOWN INDICATION
     Route: 065
  7. SIMVASTATINE [Concomitant]
     Indication: PRODUCT USED FOR UNKNOWN INDICATION
     Route: 065
  8. ACCUPRIL [Concomitant]
     Dosage: 1/2 TABLET PER DAY
     Route: 065
  9. ZOLPIDEM [Concomitant]
     Dosage: 1/4 TABLET PER DAY
     Route: 065
  10. SELOZOK [Concomitant]
     Route: 065
     Dates: end: 201202
  11. SELOZOK [Concomitant]
     Dosage: 1/2 TABLET PER DAY
     Route: 065
     Dates: start: 201202

REACTIONS (1)
  - Polymyositis [Recovered/Resolved]
